FAERS Safety Report 17457526 (Version 1)
Quarter: 2020Q1

REPORT INFORMATION
  Report Type: Spontaneous
  Country: US (occurrence: US)
  Receive Date: 20200225
  Receipt Date: 20200225
  Transmission Date: 20200409
  Serious: Yes (Death, Hospitalization, Other)
  Sender: FDA-Public Use
  Company Number: US-VISTAPHARM, INC.-VER202002-000362

PATIENT
  Age: 18 Year
  Sex: Female

DRUGS (1)
  1. HYDROCODONE AND ACETAMINOPHEN [Suspect]
     Active Substance: ACETAMINOPHEN\HYDROCODONE
     Indication: PRODUCT USED FOR UNKNOWN INDICATION
     Dosage: INGESTED 48 OF THE 500 MG TABLETS (24-GRAM TOTAL DOSE)
     Route: 048

REACTIONS (4)
  - Overdose [Unknown]
  - Brain oedema [Unknown]
  - Completed suicide [Fatal]
  - Acute hepatic failure [Fatal]
